FAERS Safety Report 4341624-X (Version None)
Quarter: 2004Q2

REPORT INFORMATION
  Report Type: 
  Country: None (occurrence: None)
  Receive Date: 20040420
  Receipt Date: 20040414
  Transmission Date: 20050107
  Serious: Yes (Hospitalization)
  Sender: FDA-Public Use
  Company Number: 200411201EU

PATIENT
  Age: 61 Year
  Sex: Male

DRUGS (5)
  1. DAONIL [Suspect]
     Indication: DIABETES MELLITUS
     Route: 048
     Dates: start: 19990101, end: 20040315
  2. DIANBEN [Suspect]
     Indication: DIABETES MELLITUS
     Route: 048
     Dates: start: 19990101, end: 20040315
  3. PANTOPRAZOL [Suspect]
     Indication: PEPTIC ULCER
     Dates: end: 20040315
  4. PLAVIX [Suspect]
     Route: 048
     Dates: end: 20040315
  5. GABAPENTIN [Suspect]
     Indication: AUTONOMIC NEUROPATHY
     Dates: start: 20010101, end: 20040315

REACTIONS (2)
  - HEPATIC STEATOSIS [None]
  - PANCREATITIS [None]
